FAERS Safety Report 15302059 (Version 1)
Quarter: 2018Q3

REPORT INFORMATION
  Report Type: Spontaneous
  Country: TW (occurrence: TW)
  Receive Date: 20180821
  Receipt Date: 20180821
  Transmission Date: 20181010
  Serious: Yes (Death, Life-Threatening, Other)
  Sender: FDA-Public Use
  Company Number: TW-ELI_LILLY_AND_COMPANY-TW201808007916

PATIENT
  Age: 69 Year
  Sex: Male

DRUGS (3)
  1. DOCETAXEL. [Concomitant]
     Active Substance: DOCETAXEL
     Indication: NON-SMALL CELL LUNG CANCER STAGE IIIB
     Dosage: 30 MG/M2, CYCLICAL
     Route: 065
     Dates: start: 201802
  2. CISPLATIN. [Concomitant]
     Active Substance: CISPLATIN
     Indication: NON-SMALL CELL LUNG CANCER STAGE IIIB
     Dosage: 50 MG/M2, CYCLICAL
     Route: 065
     Dates: start: 201802
  3. RAMUCIRUMAB [Suspect]
     Active Substance: RAMUCIRUMAB
     Indication: NON-SMALL CELL LUNG CANCER STAGE IIIB
     Dosage: 10 MG/KG, CYCLICAL

REACTIONS (3)
  - Tracheo-oesophageal fistula [Unknown]
  - Death [Fatal]
  - Haemoptysis [Unknown]
